FAERS Safety Report 7539166-3 (Version None)
Quarter: 2011Q2

REPORT INFORMATION
  Report Type: 
  Country: None (occurrence: None)
  Receive Date: 20110610
  Receipt Date: 20051209
  Transmission Date: 20111010
  Serious: Yes (Death, Hospitalization, Other)
  Sender: FDA-Public Use
  Company Number: PHFR2005GB03775

PATIENT
  Sex: Female

DRUGS (2)
  1. CLOZAPINE [Suspect]
     Indication: SCHIZOPHRENIA
     Route: 048
     Dates: start: 19940324
  2. CLOZAPINE [Suspect]
     Route: 007

REACTIONS (4)
  - INFLUENZA LIKE ILLNESS [None]
  - UPPER RESPIRATORY TRACT INFECTION [None]
  - SEPSIS [None]
  - CHRONIC OBSTRUCTIVE PULMONARY DISEASE [None]
